FAERS Safety Report 18576688 (Version 2)
Quarter: 2020Q4

REPORT INFORMATION
  Report Type: Spontaneous
  Country: US (occurrence: US)
  Receive Date: 20201203
  Receipt Date: 20201219
  Transmission Date: 20210114
  Serious: No
  Sender: FDA-Public Use
  Company Number: US-ALKERMES INC.-ALK-2020-005422

PATIENT
  Sex: Male

DRUGS (2)
  1. VIVITROL [Suspect]
     Active Substance: NALTREXONE
     Indication: ALCOHOLISM
     Dosage: 380 MILLIGRAM, QMO
     Route: 030
     Dates: start: 20201120
  2. VIVITROL [Suspect]
     Active Substance: NALTREXONE
     Dosage: 380 MILLIGRAM, QMO
     Route: 030

REACTIONS (9)
  - Mental disorder [Recovering/Resolving]
  - Olfactory nerve disorder [Not Recovered/Not Resolved]
  - Libido decreased [Not Recovered/Not Resolved]
  - Ageusia [Recovering/Resolving]
  - Anosmia [Recovering/Resolving]
  - Influenza like illness [Recovering/Resolving]
  - Sexual dysfunction [Not Recovered/Not Resolved]
  - Libido disorder [Recovering/Resolving]
  - Eye swelling [Recovering/Resolving]
